FAERS Safety Report 4571719-7 (Version None)
Quarter: 2005Q1

REPORT INFORMATION
  Report Type: 
  Country: None (occurrence: None)
  Receive Date: 20050207
  Receipt Date: 20050126
  Transmission Date: 20050727
  Serious: Yes (Other)
  Sender: FDA-Public Use
  Company Number: BE-ROCHE-393672

PATIENT
  Sex: Male

DRUGS (2)
  1. PEGASYS [Suspect]
     Route: 058
     Dates: start: 20041130
  2. COPEGUS [Suspect]
     Route: 048
     Dates: start: 20041130

REACTIONS (1)
  - ENCEPHALOPATHY [None]
